FAERS Safety Report 6254844-4 (Version None)
Quarter: 2009Q3

REPORT INFORMATION
  Report Type: 
  Country: None (occurrence: None)
  Receive Date: 20090702
  Receipt Date: 20090626
  Transmission Date: 20100115
  Serious: Yes (Other)
  Sender: FDA-Public Use
  Company Number: US-ELI_LILLY_AND_COMPANY-US200906000163

PATIENT
  Sex: Female

DRUGS (2)
  1. FORTEO [Suspect]
     Dosage: UNK, UNK
     Dates: start: 20090201, end: 20090501
  2. FORTEO [Suspect]
     Dosage: UNK, UNK
     Dates: start: 20090523, end: 20090501

REACTIONS (3)
  - BONE DISORDER [None]
  - FEAR [None]
  - OSTEONECROSIS [None]
